FAERS Safety Report 17328078 (Version 1)
Quarter: 2020Q1

REPORT INFORMATION
  Report Type: Report from Study
  Country: US (occurrence: US)
  Receive Date: 20200127
  Receipt Date: 20200127
  Transmission Date: 20200409
  Serious: Yes (Other)
  Sender: FDA-Public Use
  Company Number: US-APOPHARMA INC-2020AP006721

PATIENT
  Sex: Male
  Weight: 23 kg

DRUGS (1)
  1. FERRIPROX [Suspect]
     Active Substance: DEFERIPRONE
     Indication: THALASSAEMIA BETA
     Dosage: 22 MG/KG, TID
     Route: 048
     Dates: start: 20190920

REACTIONS (1)
  - Hepatic enzyme increased [Recovering/Resolving]
